FAERS Safety Report 10431491 (Version 1)
Quarter: 2014Q3

REPORT INFORMATION
  Report Type: Spontaneous
  Country: CH (occurrence: CH)
  Receive Date: 20140904
  Receipt Date: 20140904
  Transmission Date: 20150326
  Serious: Yes (Hospitalization)
  Sender: FDA-Public Use
  Company Number: CH-ABBVIE-14P-151-1279034-00

PATIENT
  Age: 65 Year
  Sex: Female

DRUGS (8)
  1. HALDOL [Suspect]
     Active Substance: HALOPERIDOL
     Indication: BIPOLAR DISORDER
     Route: 048
     Dates: start: 20140115, end: 20140126
  2. DEPAKINE CHRONO [Suspect]
     Active Substance: VALPROATE SODIUM
     Indication: BIPOLAR DISORDER
     Route: 048
     Dates: start: 2011
  3. HALDOL [Suspect]
     Active Substance: HALOPERIDOL
     Indication: MANIA
  4. PSYCHOPAX [Suspect]
     Active Substance: DIAZEPAM
     Indication: MANIA
  5. PSYCHOPAX [Suspect]
     Active Substance: DIAZEPAM
     Indication: BIPOLAR DISORDER
     Route: 048
     Dates: start: 20140115, end: 20140126
  6. QUETIAPINE FUMARATE. [Suspect]
     Active Substance: QUETIAPINE FUMARATE
     Indication: MANIA
  7. QUETIAPINE FUMARATE. [Suspect]
     Active Substance: QUETIAPINE FUMARATE
     Indication: BIPOLAR DISORDER
     Dates: start: 2011
  8. DEPAKINE CHRONO [Suspect]
     Active Substance: VALPROATE SODIUM
     Indication: MANIA

REACTIONS (3)
  - Disturbance in attention [Recovered/Resolved]
  - Fatigue [Recovered/Resolved]
  - Ankle fracture [Unknown]

NARRATIVE: CASE EVENT DATE: 20140124
